FAERS Safety Report 15720580 (Version 2)
Quarter: 2019Q2

REPORT INFORMATION
  Report Type: Report from Study
  Country: AR (occurrence: AR)
  Receive Date: 20181213
  Receipt Date: 20190409
  Transmission Date: 20190711
  Serious: Yes (Hospitalization, Other)
  Sender: FDA-Public Use
  Company Number: AR-EXELIXIS-XL18418017544

PATIENT
  Age: 54 Year
  Sex: Male
  Weight: 78 kg

DRUGS (5)
  1. CABOZANTINIB [Suspect]
     Active Substance: CABOZANTINIB
     Dosage: 20 MG, UNK
     Route: 065
     Dates: start: 20181126, end: 20181126
  2. BENADRYL [Concomitant]
     Active Substance: DIPHENHYDRAMINE HYDROCHLORIDE
     Indication: PRODUCT USED FOR UNKNOWN INDICATION
     Dosage: 10 MILLIGRAM
     Route: 042
     Dates: start: 20181126, end: 20181126
  3. NIVOLUMAB [Suspect]
     Active Substance: NIVOLUMAB
     Indication: METASTATIC RENAL CELL CARCINOMA
     Dosage: 240 MG, UNK
     Route: 065
     Dates: start: 20180410, end: 20181126
  4. CABOZANTINIB [Suspect]
     Active Substance: CABOZANTINIB
     Indication: METASTATIC RENAL CELL CARCINOMA
     Dosage: 40 MG, UNK
     Route: 065
     Dates: start: 20180410, end: 20180410
  5. PREGABALIN. [Concomitant]
     Active Substance: PREGABALIN
     Indication: PRODUCT USED FOR UNKNOWN INDICATION
     Dosage: 150 MILLIGRAM
     Route: 048
     Dates: start: 20180110

REACTIONS (1)
  - Tumour pain [Recovered/Resolved]

NARRATIVE: CASE EVENT DATE: 20181129
